FAERS Safety Report 4284894-9 (Version None)
Quarter: 2004Q1

REPORT INFORMATION
  Report Type: 
  Country: None (occurrence: None)
  Receive Date: 20040202
  Receipt Date: 20040123
  Transmission Date: 20041129
  Serious: Yes (Hospitalization, Other)
  Sender: FDA-Public Use
  Company Number: 2003114034

PATIENT
  Age: 63 Year
  Sex: Male
  Weight: 84.8226 kg

DRUGS (4)
  1. TIKOSYN [Suspect]
     Indication: HEART RATE INCREASED
     Dosage: 500 MCG (BID), ORAL
     Route: 048
     Dates: start: 20031008, end: 20031126
  2. DIOVAN HCT [Concomitant]
  3. VALSARTAN (VALSARTAN) [Concomitant]
  4. LOTREL (AMLODIPNE, BENAZEPRIL HYDROCHLORIDE) [Concomitant]

REACTIONS (6)
  - ABDOMINAL DISCOMFORT [None]
  - ATRIAL FIBRILLATION [None]
  - BLOOD PRESSURE INCREASED [None]
  - DRUG INEFFECTIVE [None]
  - HEADACHE [None]
  - HEART RATE INCREASED [None]
